FAERS Safety Report 5569582-0 (Version None)
Quarter: 2007Q4

REPORT INFORMATION
  Report Type: 
  Country: None (occurrence: None)
  Receive Date: 20071218
  Receipt Date: 20071218
  Transmission Date: 20080405
  Serious: Yes (Hospitalization)
  Sender: FDA-Public Use
  Company Number: 17823

PATIENT
  Age: 70 Year
  Sex: Female
  Weight: 98 kg

DRUGS (3)
  1. PACLITAXEL [Suspect]
     Indication: BREAST CANCER
  2. PACLITAXEL [Suspect]
  3. PACLITAXEL [Suspect]

REACTIONS (2)
  - ANAPHYLACTIC SHOCK [None]
  - BRONCHOSPASM [None]
